FAERS Safety Report 10947410 (Version 1)
Quarter: 2015Q1

REPORT INFORMATION
  Report Type: Spontaneous
  Country: US (occurrence: None)
  Receive Date: 20150220
  Receipt Date: 20150220
  Transmission Date: 20150721
  Serious: Yes (Hospitalization)
  Sender: FDA-Public Use
  Company Number: 1000073799

PATIENT
  Sex: Female

DRUGS (3)
  1. BROVNAN (ARFORMOTEROL TARTRATE) [Concomitant]
  2. FLOVENT [Concomitant]
     Active Substance: FLUTICASONE PROPIONATE
  3. TUDORZA PRESSAIR [Suspect]
     Active Substance: ACLIDINIUM BROMIDE
     Indication: CHRONIC OBSTRUCTIVE PULMONARY DISEASE
     Dosage: 800 MCG (400 MCG,2 IN 1 D) RESPIRATORY
     Route: 055
     Dates: start: 201409

REACTIONS (1)
  - Bronchitis [None]

NARRATIVE: CASE EVENT DATE: 20141218
